FAERS Safety Report 7599823-X (Version None)
Quarter: 2011Q3

REPORT INFORMATION
  Report Type: 
  Country: None (occurrence: None)
  Receive Date: 20110706
  Receipt Date: 20110706
  Transmission Date: 20111222
  Serious: Yes (Hospitalization)
  Sender: FDA-Public Use
  Company Number: None

PATIENT
  Sex: Male
  Weight: 93 kg

DRUGS (2)
  1. GAMMAGARD [Suspect]
     Indication: CHRONIC INFLAMMATORY DEMYELINATING POLYRADICULONEUROPATHY
     Dosage: 35 GRAMS 5 DOSES OVER 5 WKS 5 DOSES OVER 5 WKS IV 80 GRAMS 3 DOSES OVER 1MO IV
     Route: 042
     Dates: start: 20110422, end: 20110610
  2. GAMMAGARD [Suspect]
     Indication: CHRONIC INFLAMMATORY DEMYELINATING POLYRADICULONEUROPATHY
     Dosage: 35 GRAMS 5 DOSES OVER 5 WKS 5 DOSES OVER 5 WKS IV 80 GRAMS 3 DOSES OVER 1MO IV
     Route: 042
     Dates: start: 20110328, end: 20110401

REACTIONS (3)
  - IMMOBILE [None]
  - PULMONARY EMBOLISM [None]
  - GASTROINTESTINAL HAEMORRHAGE [None]
